FAERS Safety Report 17243268 (Version 1)
Quarter: 2019Q4

REPORT INFORMATION
  Report Type: Spontaneous
  Country: US (occurrence: US)
  Receive Date: 20191212
  Receipt Date: 20191212
  Transmission Date: 20200122
  Serious: No
  Sender: FDA-Public Use
  Company Number: None

PATIENT
  Sex: Female

DRUGS (1)
  1. TALTZ [Suspect]
     Active Substance: IXEKIZUMAB
     Indication: PSORIATIC ARTHROPATHY
     Route: 058
     Dates: start: 20191115

REACTIONS (5)
  - Psoriasis [None]
  - Therapeutic product effect decreased [None]
  - Injection site bruising [None]
  - Disease recurrence [None]
  - Injection site urticaria [None]
